FAERS Safety Report 5217716-X (Version None)
Quarter: 2007Q1

REPORT INFORMATION
  Report Type: 
  Country: None (occurrence: None)
  Receive Date: 20070124
  Receipt Date: 20070112
  Transmission Date: 20070707
  Serious: Yes (Hospitalization)
  Sender: FDA-Public Use
  Company Number: FR-BAYER-200710044BFR

PATIENT
  Age: 74 Year
  Sex: Female
  Weight: 74 kg

DRUGS (3)
  1. CIPROFLOXACIN [Suspect]
     Indication: PYREXIA
     Route: 048
     Dates: start: 20060918, end: 20060921
  2. NORAMIDOPYRINE [Concomitant]
     Indication: PYREXIA
     Route: 042
     Dates: start: 20060918, end: 20060920
  3. BEFIZAL [Concomitant]
     Indication: UNEVALUABLE EVENT
     Route: 048

REACTIONS (6)
  - ANURIA [None]
  - HYPERTENSION [None]
  - METABOLIC ACIDOSIS [None]
  - RENAL FAILURE ACUTE [None]
  - RENAL TUBULAR DISORDER [None]
  - RENAL TUBULAR NECROSIS [None]
